FAERS Safety Report 4410965-X (Version None)
Quarter: 2004Q3

REPORT INFORMATION
  Report Type: 
  Country: None (occurrence: None)
  Receive Date: 20040729
  Receipt Date: 20020116
  Transmission Date: 20050211
  Serious: Yes (Hospitalization)
  Sender: FDA-Public Use
  Company Number: US-GLAXOSMITHKLINE-A0357465A

PATIENT
  Age: 51 Year
  Sex: Female

DRUGS (6)
  1. AVANDIA [Suspect]
     Dosage: 8MG PER DAY
     Route: 048
     Dates: start: 19991101, end: 20010601
  2. GLUCOTROL XL [Concomitant]
     Dosage: 10MG TWICE PER DAY
  3. CLARITIN [Concomitant]
     Dosage: 10MG PER DAY
  4. VOLTAREN-XR [Concomitant]
     Dates: start: 19991101, end: 20000101
  5. DICLOFENAC [Concomitant]
     Dosage: 100MG PER DAY
     Dates: start: 20000101, end: 20020101
  6. TYLENOL [Concomitant]

REACTIONS (12)
  - ABASIA [None]
  - BONE PAIN [None]
  - CARDIAC FAILURE CONGESTIVE [None]
  - FLUID RETENTION [None]
  - GENERALISED OEDEMA [None]
  - GINGIVAL SWELLING [None]
  - MITRAL VALVE DISEASE [None]
  - OEDEMA PERIPHERAL [None]
  - PERIODONTITIS [None]
  - PHOTOPSIA [None]
  - PULMONARY OEDEMA [None]
  - TINNITUS [None]
